FAERS Safety Report 15853246 (Version 2)
Quarter: 2019Q2

REPORT INFORMATION
  Report Type: Spontaneous
  Country: US (occurrence: US)
  Receive Date: 20190122
  Receipt Date: 20190524
  Transmission Date: 20190711
  Serious: No
  Sender: FDA-Public Use
  Company Number: US-GLAXOSMITHKLINE-US2019003443

PATIENT
  Sex: Female

DRUGS (3)
  1. CARVEDILOL TABLET [Suspect]
     Active Substance: CARVEDILOL
     Indication: HYPERTENSION
     Dosage: UNK
     Route: 048
  2. COREG [Suspect]
     Active Substance: CARVEDILOL
     Indication: HYPERTENSION
     Route: 048
  3. CARVEDILOL TABLET [Suspect]
     Active Substance: CARVEDILOL
     Indication: CARDIAC DISORDER

REACTIONS (3)
  - Product availability issue [Unknown]
  - Ill-defined disorder [Unknown]
  - Drug intolerance [Unknown]
